FAERS Safety Report 17602279 (Version 1)
Quarter: 2020Q1

REPORT INFORMATION
  Report Type: Spontaneous
  Country: BE (occurrence: BE)
  Receive Date: 20200330
  Receipt Date: 20200330
  Transmission Date: 20200409
  Serious: Yes (Other)
  Sender: FDA-Public Use
  Company Number: BE-FRESENIUS KABI-FK202003242

PATIENT
  Age: 60 Year
  Sex: Female

DRUGS (2)
  1. DEXAMETHASONE INJECTION (MANUFACTURER UNKNOWN) [Suspect]
     Active Substance: DEXAMETHASONE
     Indication: PRODUCT USED FOR UNKNOWN INDICATION
     Route: 065
  2. IODINE (131 I) [Suspect]
     Active Substance: SODIUM IODIDE I-131
     Indication: METASTASES TO BONE
     Dosage: 214 MCI
     Route: 065

REACTIONS (5)
  - Interstitial lung disease [Recovered/Resolved]
  - Lymphopenia [Recovered/Resolved]
  - Cytomegalovirus infection [Recovered/Resolved]
  - Pancytopenia [Recovered/Resolved]
  - Haemophagocytic lymphohistiocytosis [Recovered/Resolved]
